FAERS Safety Report 12613107 (Version 1)
Quarter: 2016Q3

REPORT INFORMATION
  Report Type: Report from Study
  Country: US (occurrence: US)
  Receive Date: 20160802
  Receipt Date: 20160802
  Transmission Date: 20161109
  Serious: Yes (Hospitalization, Other)
  Sender: FDA-Public Use
  Company Number: US-ROCHE-1076218

PATIENT
  Age: 24 Year
  Sex: Female
  Weight: 57.7 kg

DRUGS (5)
  1. VISMODEGIB [Suspect]
     Active Substance: VISMODEGIB
     Dosage: TREATMENT ASSIGNED CODE:DL1, COURSE 2
     Route: 048
     Dates: start: 20111207
  2. VISMODEGIB [Suspect]
     Active Substance: VISMODEGIB
     Dosage: TREATMENT ASSIGNED CODE:DL1, COURSE 3
     Route: 048
     Dates: start: 20120104
  3. CELEXA [Concomitant]
     Active Substance: CITALOPRAM HYDROBROMIDE
  4. VISMODEGIB [Suspect]
     Active Substance: VISMODEGIB
     Indication: MEDULLOBLASTOMA
     Dosage: TREATMENT ASSIGNED CODE:DL1, COURSE 1
     Route: 048
     Dates: start: 20111109
  5. VISMODEGIB [Suspect]
     Active Substance: VISMODEGIB
     Dosage: LAST DOSE ADMINISTERED IN DAY 16 OF COURSE 4?TREATMENT ASSIGNED CODE:DL1, COURSE 4
     Route: 048
     Dates: start: 20120201, end: 20120216

REACTIONS (3)
  - Lymphocyte count decreased [Unknown]
  - Headache [Recovered/Resolved]
  - Vomiting [Unknown]

NARRATIVE: CASE EVENT DATE: 20120215
